FAERS Safety Report 5167649-2 (Version None)
Quarter: 2006Q4

REPORT INFORMATION
  Report Type: 
  Country: None (occurrence: None)
  Receive Date: 20061201
  Receipt Date: 20061201
  Transmission Date: 20070319
  Serious: Yes (Hospitalization)
  Sender: FDA-Public Use
  Company Number: None

PATIENT
  Age: 60 Year
  Sex: Male
  Weight: 77.1115 kg

DRUGS (8)
  1. MYFORTIC [Suspect]
  2. PROGRAF [Suspect]
  3. MYFORTIC [Concomitant]
  4. PROGRAF [Concomitant]
  5. VALGANCICLOVIR HCL [Concomitant]
  6. DAPSONE [Concomitant]
  7. LASIX [Concomitant]
  8. METOLOPRAMIDE [Concomitant]

REACTIONS (5)
  - ASTHENIA [None]
  - CHILLS [None]
  - DECUBITUS ULCER [None]
  - PYREXIA [None]
  - URINARY TRACT INFECTION [None]
